FAERS Safety Report 15674507 (Version 1)
Quarter: 2018Q4

REPORT INFORMATION
  Report Type: Spontaneous
  Country: JP (occurrence: JP)
  Receive Date: 20181130
  Receipt Date: 20181130
  Transmission Date: 20190205
  Serious: Yes (Other)
  Sender: FDA-Public Use
  Company Number: JP-PFIZER INC-2018483398

PATIENT
  Age: 86 Year
  Sex: Female

DRUGS (11)
  1. ALDACTONE A 25MG [Suspect]
     Active Substance: SPIRONOLACTONE
     Indication: HYPOKALAEMIA
     Dosage: 25 MG, 1X/DAY
     Route: 048
     Dates: start: 20181019, end: 20181020
  2. AZILVA [Concomitant]
     Active Substance: AZILSARTAN KAMEDOXOMIL
  3. DEPAS [ETIZOLAM] [Concomitant]
     Active Substance: ETIZOLAM
  4. BIOFERMIN [BIFIDOBACTERIUM NOS] [Concomitant]
  5. PLETAAL [Concomitant]
     Active Substance: CILOSTAZOL
  6. LASIX [Concomitant]
     Active Substance: FUROSEMIDE
  7. MARZULENE-S [Concomitant]
     Active Substance: SODIUM GUALENATE
  8. ADALAT [Concomitant]
     Active Substance: NIFEDIPINE
     Dosage: UNK
  9. BERIZ [Concomitant]
  10. ADALAT [Concomitant]
     Active Substance: NIFEDIPINE
     Dosage: UNK
  11. MUCOSTA [Concomitant]
     Active Substance: REBAMIPIDE

REACTIONS (4)
  - Diarrhoea [Unknown]
  - Decreased appetite [Unknown]
  - Hypokalaemia [Unknown]
  - Nausea [Unknown]

NARRATIVE: CASE EVENT DATE: 20181019
